FAERS Safety Report 5500543-3 (Version None)
Quarter: 2007Q4

REPORT INFORMATION
  Report Type: 
  Country: None (occurrence: None)
  Receive Date: 20071018
  Receipt Date: 20061113
  Transmission Date: 20080405
  Serious: Yes (Other)
  Sender: FDA-Public Use
  Company Number: 2006142144

PATIENT
  Sex: Female
  Weight: 55.7924 kg

DRUGS (7)
  1. NEURONTIN [Suspect]
     Indication: PAIN
  2. LYRICA [Suspect]
     Indication: PAIN
     Dosage: 150 MG (75 MG, 2 IN 1 D)
     Dates: start: 20060531
  3. PLAQUENIL [Concomitant]
  4. INDOMETHACIN [Concomitant]
  5. CYTOTEC [Concomitant]
  6. VICODIN [Concomitant]
  7. BENADRYL [Concomitant]

REACTIONS (8)
  - BLOOD GLUCOSE DECREASED [None]
  - DISTURBANCE IN ATTENTION [None]
  - DRUG EFFECT DECREASED [None]
  - FATIGUE [None]
  - HYPOAESTHESIA [None]
  - PRESYNCOPE [None]
  - SOMNOLENCE [None]
  - URTICARIA [None]
